FAERS Safety Report 10056348 (Version 7)
Quarter: 2014Q3

REPORT INFORMATION
  Report Type: Spontaneous
  Country: GB (occurrence: None)
  Receive Date: 20140401
  Receipt Date: 20140731
  Transmission Date: 20150326
  Serious: Yes (Hospitalization)
  Sender: FDA-Public Use
  Company Number: AUR-APL-2014-03969

PATIENT
  Age: 22 Year

DRUGS (4)
  1. METRONIDAZOLE. [Suspect]
     Active Substance: METRONIDAZOLE
     Indication: PRODUCT USED FOR UNKNOWN INDICATION
     Dosage: 400 MG,3 TIMES A DAY, ORAL
     Route: 048
     Dates: start: 20140204
  2. PHENYTOIN SODIUM. [Suspect]
     Active Substance: PHENYTOIN SODIUM
     Indication: PRODUCT USED FOR UNKNOWN INDICATION
     Dosage: 100 MG,3 TIMES A DAY, ORAL
     Route: 048
     Dates: start: 20140204
  3. LEVETIRACETAM. [Suspect]
     Active Substance: LEVETIRACETAM
     Indication: PRODUCT USED FOR UNKNOWN INDICATION
     Dosage: 250 MG, ONCE A DAY, ORAL
     Route: 048
     Dates: start: 20140204
  4. CEFTRIAXONE. [Suspect]
     Active Substance: CEFTRIAXONE
     Indication: PRODUCT USED FOR UNKNOWN INDICATION
     Dosage: 2 G, TWO TIMES A DAY, INTRAVENOUS
     Route: 042
     Dates: start: 20140204

REACTIONS (21)
  - Prothrombin time prolonged [None]
  - Blood albumin decreased [None]
  - Haemoglobin increased [None]
  - Blood urea decreased [None]
  - Red blood cell count increased [None]
  - Mean cell volume decreased [None]
  - Mean cell haemoglobin decreased [None]
  - Shunt stenosis [None]
  - Thrombocytopenia [None]
  - C-reactive protein increased [None]
  - Lymphocyte count decreased [None]
  - Streptococcal sepsis [None]
  - Dyspnoea [None]
  - Malaise [None]
  - Brain abscess [None]
  - Streptococcal abscess [None]
  - Chills [None]
  - Convulsion [None]
  - Neutropenia [None]
  - Haematocrit increased [None]
  - Blood magnesium decreased [None]

NARRATIVE: CASE EVENT DATE: 20140225
